FAERS Safety Report 8819318 (Version 1)
Quarter: 2012Q4

REPORT INFORMATION
  Report Type: Report from Study
  Country: CA (occurrence: CA)
  Receive Date: 20121001
  Receipt Date: 20121001
  Transmission Date: 20130627
  Serious: Yes (Other)
  Sender: FDA-Public Use
  Company Number: CA-JNJFOC-20120911125

PATIENT
  Age: 42 Year
  Sex: Female
  Weight: 53 kg

DRUGS (5)
  1. REMICADE [Suspect]
     Indication: CROHN^S DISEASE
     Route: 042
     Dates: start: 20090121
  2. IMURAN [Concomitant]
     Route: 048
  3. VITAMIN B12 AND FOLIC ACID [Concomitant]
     Dosage: ^SL^ daily
     Route: 065
  4. ACIDOPHILUS [Concomitant]
     Route: 048
  5. L GLUTAMINE [Concomitant]
     Route: 048

REACTIONS (2)
  - Vomiting [Recovering/Resolving]
  - Abdominal pain [Recovering/Resolving]
